FAERS Safety Report 21868549 (Version 1)
Quarter: 2023Q1

REPORT INFORMATION
  Report Type: Report from Study
  Country: US (occurrence: US)
  Receive Date: 20230117
  Receipt Date: 20230117
  Transmission Date: 20230417
  Serious: No
  Sender: FDA-Public Use
  Company Number: US-ABBVIE-4240984

PATIENT
  Age: 41 Year
  Sex: Female

DRUGS (1)
  1. HUMIRA [Suspect]
     Active Substance: ADALIMUMAB
     Indication: Ankylosing spondylitis
     Dosage: CITRATE FREE
     Route: 058
     Dates: start: 20221118

REACTIONS (4)
  - Injection site bruising [Recovered/Resolved]
  - Injection site pain [Recovered/Resolved]
  - Liquid product physical issue [Unknown]
  - Injection site vesicles [Unknown]

NARRATIVE: CASE EVENT DATE: 20221118
